FAERS Safety Report 5603109-X (Version None)
Quarter: 2008Q1

REPORT INFORMATION
  Report Type: 
  Country: None (occurrence: None)
  Receive Date: 20080125
  Receipt Date: 20080123
  Transmission Date: 20080703
  Serious: Yes (Life-Threatening, Hospitalization)
  Sender: FDA-Public Use
  Company Number: US-BRISTOL-MYERS SQUIBB COMPANY-14051551

PATIENT
  Age: 72 Year
  Sex: Female
  Weight: 54 kg

DRUGS (13)
  1. GLUCOPHAGE [Suspect]
     Indication: DIABETES MELLITUS
     Dosage: INITIATED WITH 500MG BID SINCE MAY-2007. DOSE INCREASED TO 2500MG FROM 10-JAN-2008.
     Route: 048
     Dates: start: 20080110
  2. EPOGEN [Concomitant]
  3. TOPAMAX [Concomitant]
  4. ATROVENT [Concomitant]
  5. CLONIDINE [Concomitant]
  6. BACTRIM [Concomitant]
  7. CIPRO [Concomitant]
  8. LOPRESSOR [Concomitant]
  9. NORVASC [Concomitant]
  10. LISINOPRIL [Concomitant]
  11. PREDNISONE TAB [Concomitant]
  12. LIPITOR [Concomitant]
  13. HYDROCHLOROTHIAZIDE [Concomitant]

REACTIONS (4)
  - ADRENAL INSUFFICIENCY [None]
  - HYPOTHERMIA [None]
  - LACTIC ACIDOSIS [None]
  - SEPSIS [None]
